FAERS Safety Report 23002339 (Version 4)
Quarter: 2024Q2

REPORT INFORMATION
  Report Type: Spontaneous
  Country: US (occurrence: US)
  Receive Date: 20230928
  Receipt Date: 20240612
  Transmission Date: 20240715
  Serious: No
  Sender: FDA-Public Use
  Company Number: US-SA-SAC20230927000058

PATIENT
  Age: 14 Year
  Sex: Male

DRUGS (1)
  1. DUPIXENT [Suspect]
     Active Substance: DUPILUMAB
     Indication: Eosinophilic oesophagitis
     Dosage: 300 MG, QW
     Route: 058
     Dates: start: 202305

REACTIONS (12)
  - Nausea [Recovered/Resolved]
  - Amnesia [Unknown]
  - Depressed mood [Unknown]
  - Disturbance in attention [Unknown]
  - Infusion site warmth [Unknown]
  - Injection site irritation [Unknown]
  - Constipation [Recovered/Resolved]
  - Sinusitis [Recovered/Resolved]
  - Injection site pain [Recovered/Resolved]
  - Injection site swelling [Unknown]
  - Eosinophilic oesophagitis [Recovered/Resolved]
  - Hypersensitivity [Recovered/Resolved]

NARRATIVE: CASE EVENT DATE: 20230816
